FAERS Safety Report 13823374 (Version 1)
Quarter: 2017Q3

REPORT INFORMATION
  Report Type: Spontaneous
  Country: US (occurrence: US)
  Receive Date: 20170802
  Receipt Date: 20170802
  Transmission Date: 20171127
  Serious: No
  Sender: FDA-Public Use
  Company Number: US-AMGEN-USASP2017113416

PATIENT
  Age: 60 Year
  Sex: Female

DRUGS (1)
  1. ENBREL [Suspect]
     Active Substance: ETANERCEPT
     Indication: PRODUCT USED FOR UNKNOWN INDICATION
     Dosage: 50 MG, QWK
     Route: 058

REACTIONS (8)
  - Arthropod sting [Unknown]
  - Chest discomfort [Unknown]
  - Gait disturbance [Unknown]
  - Pruritus [Unknown]
  - Nausea [Unknown]
  - Peripheral swelling [Unknown]
  - Dizziness [Unknown]
  - Syncope [Unknown]
